FAERS Safety Report 13537216 (Version 1)
Quarter: 2017Q2

REPORT INFORMATION
  Report Type: Spontaneous
  Country: US (occurrence: US)
  Receive Date: 20170511
  Receipt Date: 20170511
  Transmission Date: 20170830
  Serious: Yes (Other)
  Sender: FDA-Public Use
  Company Number: US-GLAXOSMITHKLINE-US2017065727

PATIENT
  Age: 78 Year
  Sex: Male

DRUGS (1)
  1. BUPROPION. [Suspect]
     Active Substance: BUPROPION

REACTIONS (1)
  - Subacute cutaneous lupus erythematosus [Recovered/Resolved]
